FAERS Safety Report 10434923 (Version 1)
Quarter: 2014Q3

REPORT INFORMATION
  Report Type: Spontaneous
  Country: US (occurrence: None)
  Receive Date: 20140815
  Receipt Date: 20140815
  Transmission Date: 20150326
  Serious: No
  Sender: FDA-Public Use
  Company Number: 2014TUS002621

PATIENT
  Age: 62 Year
  Sex: Female

DRUGS (16)
  1. FLEXERIL/ (CYCLOBENZAPRINE HYDROCHLORIDE) [Concomitant]
  2. MIRALAX/ (MACROGOL) [Concomitant]
  3. BRINTELLIX [Suspect]
     Active Substance: VORTIOXETINE HYDROBROMIDE
     Indication: DEPRESSION
     Route: 048
     Dates: start: 201403
  4. NORVASC [Concomitant]
     Active Substance: AMLODIPINE BESYLATE
  5. TOPROL (METOPROLOL SUCCINATE) [Concomitant]
  6. FENOFIBRATE (FENOFIBRATE) [Concomitant]
  7. SIMVASTATIN (SIMVASTATIN) [Concomitant]
     Active Substance: SIMVASTATIN
  8. CARAFATE (SUCRALFATE) [Concomitant]
  9. PRINIVIL (LISINOPRIL DIHYDRATE) [Concomitant]
  10. ZOFRAN/ (ONDANSETRON) [Concomitant]
  11. CENTRUM WOMENS 50+ (MULTIVITAMINS WITH MINERALS [Concomitant]
  12. TRAMADOL (TRAMADOL) [Concomitant]
     Active Substance: TRAMADOL
  13. ACCOLATE (ZAFIRLUKAST) [Concomitant]
  14. EVISTA [Concomitant]
     Active Substance: RALOXIFENE HYDROCHLORIDE
  15. BENEFIBER/ (DEXTRIN) [Concomitant]
  16. CALCIUM WITH VITAMIN D/ (CALCIUM CARBONATE, COLECALCIFEROL) [Concomitant]

REACTIONS (1)
  - Cellulitis [None]

NARRATIVE: CASE EVENT DATE: 20140718
